FAERS Safety Report 4318390-7 (Version None)
Quarter: 2004Q1

REPORT INFORMATION
  Report Type: 
  Country: None (occurrence: None)
  Receive Date: 20040315
  Receipt Date: 20040305
  Transmission Date: 20041129
  Serious: Yes (Death)
  Sender: FDA-Public Use
  Company Number: JP-JNJFOC-20040301111

PATIENT
  Age: 52 Year
  Sex: Male

DRUGS (10)
  1. RISPERDAL [Suspect]
     Indication: SCHIZOPHRENIA
     Dosage: 2 MG, IN 1 DAY, ORAL
     Route: 048
     Dates: start: 20040212, end: 20040214
  2. HALOPERIDOL [Suspect]
     Indication: SCHIZOPHRENIA
     Dosage: 12 MG, IN 1 DAY, ORAL; 10 MG, IN 1 DAY, ORAL
     Route: 048
     Dates: start: 20030521, end: 20031203
  3. HALOPERIDOL [Suspect]
     Indication: SCHIZOPHRENIA
     Dosage: 12 MG, IN 1 DAY, ORAL; 10 MG, IN 1 DAY, ORAL
     Route: 048
     Dates: start: 20031203, end: 20040212
  4. ZOTEPINE (ZOTEPINE) TABLETS [Suspect]
     Indication: SCHIZOPHRENIA
     Dosage: 40 MG, IN 1 DAY, ORAL; 20 MG, IN 1 DAY, ORAL; 25 MG, IN 1 DAY, ORAL
     Route: 048
     Dates: start: 20030521, end: 20030909
  5. ZOTEPINE (ZOTEPINE) TABLETS [Suspect]
     Indication: SCHIZOPHRENIA
     Dosage: 40 MG, IN 1 DAY, ORAL; 20 MG, IN 1 DAY, ORAL; 25 MG, IN 1 DAY, ORAL
     Route: 048
     Dates: start: 20030910, end: 20031007
  6. ZOTEPINE (ZOTEPINE) TABLETS [Suspect]
     Indication: SCHIZOPHRENIA
     Dosage: 40 MG, IN 1 DAY, ORAL; 20 MG, IN 1 DAY, ORAL; 25 MG, IN 1 DAY, ORAL
     Route: 048
     Dates: start: 20030521, end: 20040211
  7. BIPERIDEN (BIPERIDINE) POWDER [Concomitant]
  8. TRIHEXYPHENIDYL (TRIHEXYPHENIDYL) POWDER [Concomitant]
  9. LORMETAZEPAM (LORMETAZEPAM) UNSPECIFIED [Concomitant]
  10. FLUNITRAZEPAM (FLUNITRAZEPAM) UNSPECIFIED [Concomitant]

REACTIONS (2)
  - COMPLETED SUICIDE [None]
  - INTENTIONAL SELF-INJURY [None]
